FAERS Safety Report 8248095-1 (Version None)
Quarter: 2012Q1

REPORT INFORMATION
  Report Type: 
  Country: None (occurrence: None)
  Receive Date: 20120330
  Receipt Date: 20120320
  Transmission Date: 20120608
  Serious: Yes (Death)
  Sender: FDA-Public Use
  Company Number: GB-JNJFOC-20120204735

PATIENT
  Age: 85 Year
  Sex: Female
  Weight: 59 kg

DRUGS (1)
  1. REMICADE [Suspect]
     Indication: RHEUMATOID ARTHRITIS
     Route: 042
     Dates: start: 20030923, end: 20050301

REACTIONS (1)
  - RENAL CANCER METASTATIC [None]
